FAERS Safety Report 8843337 (Version 1)
Quarter: 2012Q4

REPORT INFORMATION
  Report Type: 
  Country: CN (occurrence: CN)
  Receive Date: 20121016
  Receipt Date: 20121016
  Transmission Date: 20130627
  Serious: Yes (Hospitalization, Other)
  Sender: FDA-Public Use
  Company Number: CN-WATSON-2012-17755

PATIENT
  Age: 40 Year
  Sex: Female

DRUGS (5)
  1. PREDNISONE (UNKNOWN) [Suspect]
     Indication: MYCOSIS FUNGOIDES
     Dosage: 15 mg, bid days 1-14
     Route: 048
     Dates: start: 20090812
  2. CYCLOPHOSPHAMIDE [Suspect]
     Indication: MYCOSIS FUNGOIDES
     Dosage: 0.6 day 1,8
     Route: 065
     Dates: start: 20090812
  3. VINCRISTINE [Suspect]
     Indication: MYCOSIS FUNGOIDES
     Dosage: 2 mg, day 1, 8
     Route: 065
     Dates: start: 20090812
  4. EPIRUBICIN [Suspect]
     Indication: MYCOSIS FUNGOIDES
     Dosage: 30 mg, day 1, 8
     Route: 065
     Dates: start: 20090812
  5. PEGASYS [Suspect]
     Indication: MYCOSIS FUNGOIDES
     Dosage: 180 ug, 1/week
     Route: 065
     Dates: start: 20090812

REACTIONS (3)
  - Bone marrow failure [Recovered/Resolved]
  - Leukopenia [Recovered/Resolved]
  - Thrombocytopenia [Recovered/Resolved]
